FAERS Safety Report 4627468-X (Version None)
Quarter: 2005Q1

REPORT INFORMATION
  Report Type: 
  Country: None (occurrence: None)
  Receive Date: 20050331
  Receipt Date: 20050318
  Transmission Date: 20050727
  Serious: Yes (Hospitalization)
  Sender: FDA-Public Use
  Company Number: HQWYE240122MAR05

PATIENT
  Age: 53 Year
  Sex: Female

DRUGS (15)
  1. EFFEXOR XR [Suspect]
     Indication: BIPOLAR DISORDER
     Dosage: 150 MG 1X PER 1 DAY; ORAL
     Route: 048
     Dates: end: 20050227
  2. EFFEXOR XR [Suspect]
     Indication: GENERALISED ANXIETY DISORDER
     Dosage: 150 MG 1X PER 1 DAY; ORAL
     Route: 048
     Dates: end: 20050227
  3. EFFEXOR XR [Suspect]
     Indication: POST-TRAUMATIC STRESS DISORDER
     Dosage: 150 MG 1X PER 1 DAY; ORAL
     Route: 048
     Dates: end: 20050227
  4. EFFEXOR XR [Suspect]
     Dosage: ^DOSE REDUCED TO 75 MG^; ORAL
     Route: 048
     Dates: start: 20050228, end: 20050301
  5. EFFEXOR [Suspect]
     Indication: BIPOLAR DISORDER
     Dosage: 37.5 MG 1X PER 1 DAY; ORAL
     Route: 048
     Dates: start: 20050315
  6. EFFEXOR [Suspect]
     Indication: GENERALISED ANXIETY DISORDER
     Dosage: 37.5 MG 1X PER 1 DAY; ORAL
     Route: 048
     Dates: start: 20050315
  7. EFFEXOR [Suspect]
     Indication: POST-TRAUMATIC STRESS DISORDER
     Dosage: 37.5 MG 1X PER 1 DAY; ORAL
     Route: 048
     Dates: start: 20050315
  8. ENALAPRIL MALEATE [Concomitant]
  9. DI-GESIC                       (DEXTROPROPOXYPHENE/PARACETAMOL) [Concomitant]
  10. PETHIDINE [Concomitant]
  11. VITAMINS [Concomitant]
  12. NEURONTIN [Concomitant]
  13. VALIUM [Concomitant]
  14. XANAX [Concomitant]
  15. RABEPRAZOLE SODIUM [Concomitant]

REACTIONS (16)
  - AMENORRHOEA [None]
  - BLOOD CHOLESTEROL INCREASED [None]
  - BRUXISM [None]
  - CANDIDIASIS [None]
  - CONDITION AGGRAVATED [None]
  - DERMATITIS EXFOLIATIVE [None]
  - DRUG WITHDRAWAL SYNDROME [None]
  - FLUSHING [None]
  - GALLBLADDER OPERATION [None]
  - MANIA [None]
  - POOR PERIPHERAL CIRCULATION [None]
  - PSORIASIS [None]
  - SKIN DISCOLOURATION [None]
  - SKIN HAEMORRHAGE [None]
  - TONGUE BITING [None]
  - TOOTH DISORDER [None]
